FAERS Safety Report 20759796 (Version 1)
Quarter: 2022Q2

REPORT INFORMATION
  Report Type: Spontaneous
  Country: US (occurrence: US)
  Receive Date: 20220427
  Receipt Date: 20220427
  Transmission Date: 20220721
  Serious: No
  Sender: FDA-Public Use
  Company Number: US-PFIZER INC-2021775490

PATIENT
  Sex: Male
  Weight: 73.469 kg

DRUGS (1)
  1. ELELYSO [Suspect]
     Active Substance: TALIGLUCERASE ALFA
     Dosage: 4410 IU, (USE 22 VIALS)

REACTIONS (2)
  - Weight decreased [Unknown]
  - Incorrect dosage administered [Unknown]
